FAERS Safety Report 7620653-4 (Version None)
Quarter: 2011Q3

REPORT INFORMATION
  Report Type: 
  Country: None (occurrence: None)
  Receive Date: 20110719
  Receipt Date: 20110627
  Transmission Date: 20111222
  Serious: Yes (Hospitalization)
  Sender: FDA-Public Use
  Company Number: US-GLAXOSMITHKLINE-A0870253A

PATIENT
  Age: 50 Year
  Sex: Male
  Weight: 102.3 kg

DRUGS (5)
  1. ZOCOR [Concomitant]
  2. INSULIN [Concomitant]
  3. AVANDIA [Suspect]
     Indication: DIABETES MELLITUS
     Route: 048
     Dates: start: 20010101
  4. AVANDAMET [Suspect]
     Indication: DIABETES MELLITUS
     Route: 048
     Dates: start: 20040817
  5. LEVITRA [Concomitant]

REACTIONS (1)
  - MYOCARDIAL INFARCTION [None]
